FAERS Safety Report 19568749 (Version 2)
Quarter: 2021Q3

REPORT INFORMATION
  Report Type: Other
  Country: ES (occurrence: ES)
  Receive Date: 20210715
  Receipt Date: 20210820
  Transmission Date: 20211014
  Serious: Yes (Hospitalization, Other)
  Sender: FDA-Public Use
  Company Number: ES-KNIGHT THERAPEUTICS (USA) INC.-2113885

PATIENT
  Age: 56 Year
  Sex: Female

DRUGS (7)
  1. IMPAVIDO [Suspect]
     Active Substance: MILTEFOSINE
     Dates: start: 2018
  2. AMPHOTERICIN B. [Concomitant]
     Active Substance: AMPHOTERICIN B
  3. ITRACONAZOLE. [Concomitant]
     Active Substance: ITRACONAZOLE
  4. PAROMOMYCIN [Concomitant]
     Active Substance: PAROMOMYCIN
  5. INTERFERON GAMMA NOS [Concomitant]
     Active Substance: INTERFERON GAMMA
  6. MEGLUMINE ANTIMONATE [Concomitant]
     Active Substance: MEGLUMINE ANTIMONIATE
  7. SODIUM STIBOGLUCONATE [Concomitant]
     Active Substance: SODIUM STIBOGLUCONATE

REACTIONS (10)
  - Pyrexia [Recovering/Resolving]
  - Generalised tonic-clonic seizure [Recovering/Resolving]
  - Off label use [None]
  - Myoclonus [Recovering/Resolving]
  - Neurotoxicity [Recovering/Resolving]
  - Loss of personal independence in daily activities [Recovering/Resolving]
  - Gait disturbance [Recovering/Resolving]
  - Reflexes abnormal [Recovering/Resolving]
  - Tremor [Recovering/Resolving]
  - Disease recurrence [Recovering/Resolving]

NARRATIVE: CASE EVENT DATE: 2018
